FAERS Safety Report 9382264 (Version 3)
Quarter: 2019Q4

REPORT INFORMATION
  Report Type: Spontaneous
  Country: US (occurrence: US)
  Receive Date: 20130703
  Receipt Date: 20191219
  Transmission Date: 20200122
  Serious: Yes (Other)
  Sender: FDA-Public Use
  Company Number: US-UCBSA-090242

PATIENT
  Age: 65 Year
  Sex: Female
  Weight: 65.7 kg

DRUGS (6)
  1. VITAMIN D [Concomitant]
     Active Substance: VITAMIN D NOS
  2. CALCIUM [Concomitant]
     Active Substance: CALCIUM
  3. ATIVAN [Concomitant]
     Active Substance: LORAZEPAM
     Dosage: 1 MG, ONCE DAILY (QD)
  4. ENDOCET [Concomitant]
     Active Substance: ACETAMINOPHEN\OXYCODONE HYDROCHLORIDE
     Indication: PAIN
  5. AMLODIPINE [Concomitant]
     Active Substance: AMLODIPINE BESYLATE
     Indication: BLOOD PRESSURE INCREASED
     Dosage: 5 MG, ONCE DAILY (QD)
  6. CIMZIA [Suspect]
     Active Substance: CERTOLIZUMAB PEGOL
     Indication: CROHN^S DISEASE
     Dosage: 400 MG, EV 4 WEEKS
     Dates: start: 20120716

REACTIONS (6)
  - Diarrhoea [Recovered/Resolved]
  - Weight decreased [Unknown]
  - Herpes zoster [Recovered/Resolved]
  - Upper respiratory tract infection [Recovered/Resolved]
  - Abdominal rigidity [Not Recovered/Not Resolved]
  - Facial pain [Unknown]

NARRATIVE: CASE EVENT DATE: 201305
